FAERS Safety Report 4581158-0 (Version None)
Quarter: 2005Q1

REPORT INFORMATION
  Report Type: 
  Country: None (occurrence: None)
  Receive Date: 20050214
  Receipt Date: 20040817
  Transmission Date: 20050727
  Serious: Yes (Other)
  Sender: FDA-Public Use
  Company Number: US-GLAXOSMITHKLINE-A0522612A

PATIENT
  Age: 39 Year
  Sex: Female
  Weight: 59.1 kg

DRUGS (3)
  1. LAMICTAL [Suspect]
     Indication: BIPOLAR DISORDER
     Route: 048
     Dates: start: 20040526, end: 20040501
  2. ZOLOFT [Concomitant]
  3. LORAZEPAM [Concomitant]
     Route: 065

REACTIONS (3)
  - ERYTHEMA MULTIFORME [None]
  - PHOTODERMATOSIS [None]
  - RASH [None]
